FAERS Safety Report 4399681-0 (Version None)
Quarter: 2004Q3

REPORT INFORMATION
  Report Type: 
  Country: None (occurrence: None)
  Receive Date: 20040713
  Receipt Date: 20030523
  Transmission Date: 20050211
  Serious: Yes (Death)
  Sender: FDA-Public Use
  Company Number: M03-INT-081

PATIENT
  Sex: Female

DRUGS (2)
  1. INTEGRILIN [Suspect]
     Indication: CORONARY ANGIOPLASTY
     Dosage: SEE IMAGE
     Route: 042
  2. HEPARIN [Concomitant]

REACTIONS (2)
  - CORONARY ARTERY THROMBOSIS [None]
  - THROMBOSIS [None]
